FAERS Safety Report 13110100 (Version 1)
Quarter: 2017Q1

REPORT INFORMATION
  Report Type: Spontaneous
  Country: US (occurrence: US)
  Receive Date: 20170112
  Receipt Date: 20170112
  Transmission Date: 20170428
  Serious: Yes (Hospitalization)
  Sender: FDA-Public Use
  Company Number: US-ROCHE-1252484

PATIENT
  Age: 51 Year
  Sex: Male

DRUGS (4)
  1. HEPARIN [Suspect]
     Active Substance: HEPARIN SODIUM
     Indication: ANTICOAGULANT THERAPY
     Route: 042
  2. MILRINONE [Concomitant]
     Active Substance: MILRINONE
     Route: 042
  3. ACTILYSE [Suspect]
     Active Substance: ALTEPLASE
     Dosage: OVER 90 MIN
     Route: 042
  4. ACTILYSE [Suspect]
     Active Substance: ALTEPLASE
     Indication: THROMBOSIS IN DEVICE
     Route: 042

REACTIONS (1)
  - Drug ineffective [Unknown]
